FAERS Safety Report 9948830 (Version 4)
Quarter: 2014Q4

REPORT INFORMATION
  Report Type: Report from Study
  Country: JP (occurrence: JP)
  Receive Date: 20140304
  Receipt Date: 20141108
  Transmission Date: 20150529
  Serious: Yes (Hospitalization)
  Sender: FDA-Public Use
  Company Number: JP-009507513-1402JPN013357

PATIENT
  Age: 61 Year
  Sex: Male
  Weight: 60 kg

DRUGS (11)
  1. URSO [Concomitant]
     Active Substance: URSODIOL
     Indication: HEPATIC CIRRHOSIS
     Dosage: 200 MG, TID, FORMULATION POR
     Route: 048
     Dates: start: 20121002
  2. CINAL [Concomitant]
     Active Substance: ASCORBIC ACID\CALCIUM PANTOTHENATE
     Indication: ANAEMIA
     Dosage: 200 MG, BID, FORMULATION POR
     Route: 048
     Dates: start: 20121106
  3. ALDACTONE [Concomitant]
     Active Substance: SPIRONOLACTONE
     Indication: HEPATIC CIRRHOSIS
     Dosage: 50 MG, BID, FORMULATION POR
     Route: 048
     Dates: start: 20121002
  4. FERROUS SULFATE [Concomitant]
     Active Substance: FERROUS SULFATE\FERROUS SULFATE, DRIED
     Indication: ANAEMIA
     Dosage: 105 MG, BID
     Route: 048
     Dates: start: 20121106
  5. LASIX [Concomitant]
     Active Substance: FUROSEMIDE
     Indication: HEPATIC CIRRHOSIS
     Dosage: 40 MG, QD
     Route: 065
     Dates: start: 20121002
  6. PARIET [Concomitant]
     Active Substance: RABEPRAZOLE SODIUM
     Indication: GASTRIC ULCER
     Dosage: 20 MG, QD
     Route: 048
     Dates: start: 20121002
  7. MIYA-BM [Concomitant]
     Active Substance: CLOSTRIDIUM BUTYRICUM SPORES STRAIN M-55
     Indication: DYSCHEZIA
     Dosage: 2 DF, TID
     Route: 048
     Dates: start: 20121002
  8. PEGINTRON [Suspect]
     Active Substance: PEGINTERFERON ALFA-2B
     Indication: HEPATIC CIRRHOSIS
     Dosage: 50 MICROGRAM, QW
     Route: 058
     Dates: start: 20121002, end: 20130108
  9. REBETOL [Suspect]
     Active Substance: RIBAVIRIN
     Indication: HEPATIC CIRRHOSIS
     Dosage: 800 MG, QD
     Route: 048
     Dates: start: 20121002, end: 20130108
  10. AMINOLEBAN EN [Concomitant]
     Active Substance: UNSPECIFIED INGREDIENT
     Indication: HEPATIC CIRRHOSIS
     Dosage: 1 DOSAGE FORM, QD,
     Route: 048
     Dates: start: 20121204
  11. LIVACT [Concomitant]
     Active Substance: AMINO ACIDS
     Indication: HEPATIC CIRRHOSIS
     Dosage: 1 DF, TID, FORMULATION POR
     Route: 048
     Dates: start: 20121002

REACTIONS (5)
  - Decreased appetite [Recovered/Resolved]
  - Anaemia [Unknown]
  - Jaundice [Not Recovered/Not Resolved]
  - Renal disorder [Not Recovered/Not Resolved]
  - Hepatic cirrhosis [Not Recovered/Not Resolved]

NARRATIVE: CASE EVENT DATE: 20121106
